FAERS Safety Report 16819193 (Version 2)
Quarter: 2019Q3

REPORT INFORMATION
  Report Type: Spontaneous
  Country: US (occurrence: US)
  Receive Date: 20190917
  Receipt Date: 20190918
  Transmission Date: 20191005
  Serious: No
  Sender: FDA-Public Use
  Company Number: US-TEVA-2019-US-1107968

PATIENT
  Sex: Male
  Weight: 95.25 kg

DRUGS (3)
  1. PREGABALIN TEVA [Suspect]
     Active Substance: PREGABALIN
     Indication: NEURALGIA
     Dosage: 450 MILLIGRAM DAILY;
     Route: 048
     Dates: start: 201908
  2. PREGABALIN TEVA [Suspect]
     Active Substance: PREGABALIN
     Indication: RESTLESS LEGS SYNDROME
  3. PREGABALIN TEVA [Suspect]
     Active Substance: PREGABALIN
     Indication: SCIATIC NERVE INJURY

REACTIONS (4)
  - Drug ineffective [Unknown]
  - Pain [Not Recovered/Not Resolved]
  - Abdominal pain [Unknown]
  - Muscle spasms [Not Recovered/Not Resolved]
